FAERS Safety Report 6039116-5 (Version None)
Quarter: 2009Q1

REPORT INFORMATION
  Report Type: 
  Country: None (occurrence: None)
  Receive Date: 20090115
  Receipt Date: 20090105
  Transmission Date: 20090719
  Serious: Yes (Hospitalization, Other)
  Sender: FDA-Public Use
  Company Number: AU-PFIZER INC-2008158056

PATIENT

DRUGS (6)
  1. ATORVASTATIN CALCIUM [Suspect]
     Dosage: 80 MG, 1X/DAY
     Dates: start: 20070725
  2. METOPROLOL SUCCINATE [Suspect]
     Dosage: 50 MG, 1X/DAY
     Route: 048
     Dates: start: 20070725
  3. OMEPRAZOLE [Suspect]
     Dosage: 40 MG, 1X/DAY
     Route: 048
     Dates: start: 20070725
  4. RAMIPRIL [Suspect]
     Dosage: 2.5 MG, 1X/DAY
     Dates: start: 20070725
  5. TRAMADOL HCL [Suspect]
     Dosage: 200 MG, 1X/DAY
     Dates: start: 20070725
  6. ALLOPURINOL [Concomitant]
     Dosage: 300 MG, 1X/DAY

REACTIONS (2)
  - ANGIOEDEMA [None]
  - RASH [None]
